FAERS Safety Report 4322037-3 (Version None)
Quarter: 2004Q1

REPORT INFORMATION
  Report Type: 
  Country: None (occurrence: None)
  Receive Date: 20040319
  Receipt Date: 20040303
  Transmission Date: 20041129
  Serious: Yes (Hospitalization)
  Sender: FDA-Public Use
  Company Number: 2004SP000044

PATIENT
  Age: 60 Year
  Sex: Male
  Weight: 97.5234 kg

DRUGS (8)
  1. XOPENEX [Suspect]
     Indication: CHRONIC OBSTRUCTIVE AIRWAYS DISEASE
     Dosage: 1.25 MG; Q6H; INHALATION
     Route: 055
     Dates: start: 20040108, end: 20040118
  2. OSCAL D [Concomitant]
  3. FOSAMAX [Concomitant]
  4. OCEAN NASAL SPRAY [Concomitant]
  5. KADIAN [Concomitant]
  6. FLOMAX [Concomitant]
  7. MIACALCIN [Concomitant]
  8. LASIX [Concomitant]

REACTIONS (2)
  - ATRIAL FIBRILLATION [None]
  - LARGE INTESTINE PERFORATION [None]
